FAERS Safety Report 19187502 (Version 5)
Quarter: 2024Q1

REPORT INFORMATION
  Report Type: Report from Study
  Country: TR (occurrence: TR)
  Receive Date: 20210427
  Receipt Date: 20240311
  Transmission Date: 20240410
  Serious: Yes (Other)
  Sender: FDA-Public Use
  Company Number: TR-PFIZER INC-2021441643

PATIENT
  Age: 64 Year
  Sex: Female

DRUGS (5)
  1. DACOMITINIB [Suspect]
     Active Substance: DACOMITINIB
     Indication: Non-small cell lung cancer metastatic
     Dosage: 30 MG
     Dates: start: 20190926, end: 20210915
  2. PERINDOPRIL ARGININE [Concomitant]
     Active Substance: PERINDOPRIL ARGININE
  3. METOPROLOL TARTRATE [Concomitant]
     Active Substance: METOPROLOL TARTRATE
  4. CLOPIDOGREL BISULFATE [Concomitant]
     Active Substance: CLOPIDOGREL BISULFATE
  5. LIPITOR [Concomitant]
     Active Substance: ATORVASTATIN CALCIUM

REACTIONS (6)
  - Xerophthalmia [Recovered/Resolved]
  - Diarrhoea [Recovered/Resolved]
  - Fatigue [Recovering/Resolving]
  - Skin toxicity [Not Recovered/Not Resolved]
  - Skin disorder [Unknown]
  - Nail disorder [Unknown]

NARRATIVE: CASE EVENT DATE: 20210918
